FAERS Safety Report 8360041-9 (Version None)
Quarter: 2012Q2

REPORT INFORMATION
  Report Type: 
  Country: None (occurrence: None)
  Receive Date: 20120515
  Receipt Date: 20120514
  Transmission Date: 20120825
  Serious: Yes (Death, Other)
  Sender: FDA-Public Use
  Company Number: PHFR2012GB002579

PATIENT
  Sex: Male

DRUGS (4)
  1. SINEMET CR [Concomitant]
     Dosage: 125 MG, DAILY
     Route: 048
  2. HYOSCINE HBR HYT [Concomitant]
  3. APOMORPHINE [Concomitant]
     Dosage: 100 MG, UNK
     Route: 058
  4. CLOZARIL [Suspect]
     Indication: SCHIZOPHRENIA
     Dosage: 37.5 (UNIT UNSPECIFIED)
     Route: 048
     Dates: start: 20030221

REACTIONS (2)
  - PROSTATE CANCER [None]
  - PARKINSON'S DISEASE [None]
